FAERS Safety Report 20724074 (Version 2)
Quarter: 2022Q2

REPORT INFORMATION
  Report Type: Spontaneous
  Country: GR (occurrence: GR)
  Receive Date: 20220419
  Receipt Date: 20220427
  Transmission Date: 20220721
  Serious: Yes (Other)
  Sender: FDA-Public Use
  Company Number: GR-Accord-261072

PATIENT
  Age: 57 Year
  Sex: Female

DRUGS (2)
  1. CISPLATIN [Suspect]
     Active Substance: CISPLATIN
     Indication: Angiosarcoma
     Dosage: 80MG/M2, D1
  2. VINORELBINE [Suspect]
     Active Substance: VINORELBINE TARTRATE
     Indication: Angiosarcoma
     Dosage: 30MG/M2, D1,8

REACTIONS (3)
  - Gastrointestinal toxicity [Recovered/Resolved]
  - Nephropathy toxic [Recovered/Resolved]
  - Haematotoxicity [Recovered/Resolved]
